FAERS Safety Report 4334572-2 (Version None)
Quarter: 2004Q2

REPORT INFORMATION
  Report Type: 
  Country: None (occurrence: None)
  Receive Date: 20040407
  Receipt Date: 20040402
  Transmission Date: 20050107
  Serious: Yes (Hospitalization)
  Sender: FDA-Public Use
  Company Number: DE-ROCHE-363549

PATIENT
  Age: 36 Year
  Sex: Female
  Weight: 68 kg

DRUGS (34)
  1. DACLIZUMAB [Suspect]
     Route: 042
     Dates: start: 20031113
  2. DACLIZUMAB [Suspect]
     Route: 042
     Dates: start: 20031127, end: 20040109
  3. MYCOPHENOLATE MOFETIL [Suspect]
     Route: 048
     Dates: start: 20040228
  4. MYCOPHENOLATE MOFETIL [Suspect]
     Route: 048
     Dates: start: 20031114
  5. MYCOPHENOLATE MOFETIL [Suspect]
     Route: 048
     Dates: start: 20031115
  6. MYCOPHENOLATE MOFETIL [Suspect]
     Route: 048
     Dates: start: 20031119
  7. MYCOPHENOLATE MOFETIL [Suspect]
     Route: 048
     Dates: start: 20031120, end: 20040219
  8. SIROLIMUS [Suspect]
     Route: 048
     Dates: start: 20040324
  9. SIROLIMUS [Suspect]
     Route: 048
     Dates: start: 20031113
  10. SIROLIMUS [Suspect]
     Route: 048
     Dates: start: 20031119
  11. SIROLIMUS [Suspect]
     Route: 048
     Dates: start: 20040113, end: 20040202
  12. SIROLIMUS [Suspect]
     Route: 048
     Dates: start: 20040205
  13. SIROLIMUS [Suspect]
     Route: 048
     Dates: start: 20040218
  14. SIROLIMUS [Suspect]
     Route: 048
     Dates: start: 20040226
  15. SIROLIMUS [Suspect]
     Route: 048
     Dates: start: 20040305
  16. SIROLIMUS [Suspect]
     Route: 048
     Dates: start: 20040318
  17. URBASON [Suspect]
     Route: 042
     Dates: start: 20040324
  18. URBASON [Suspect]
     Route: 042
     Dates: start: 20031113
  19. URBASON [Suspect]
     Route: 042
     Dates: start: 20031114
  20. URBASON [Suspect]
     Route: 042
     Dates: start: 20031115
  21. URBASON [Suspect]
     Route: 042
     Dates: start: 20031116
  22. URBASON [Suspect]
     Route: 042
     Dates: start: 20031127
  23. URBASON [Suspect]
     Route: 042
     Dates: start: 20031201
  24. URBASON [Suspect]
     Route: 042
     Dates: start: 20040108
  25. URBASON [Suspect]
     Route: 042
     Dates: start: 20040109
  26. URBASON [Suspect]
     Route: 042
     Dates: start: 20040111
  27. URBASON [Suspect]
     Route: 042
     Dates: start: 20040123
  28. URBASON [Suspect]
     Route: 042
     Dates: start: 20040203
  29. URBASON [Suspect]
     Route: 042
     Dates: start: 20040212
  30. URBASON [Suspect]
     Route: 042
     Dates: start: 20040218
  31. URBASON [Suspect]
     Route: 042
     Dates: start: 20040305
  32. METOPROLOL [Concomitant]
     Route: 048
  33. RAMIPRIL [Concomitant]
     Route: 048
  34. COTRIMOXAZOL [Concomitant]
     Route: 048

REACTIONS (1)
  - UROSEPSIS [None]
